FAERS Safety Report 18895044 (Version 1)
Quarter: 2021Q1

REPORT INFORMATION
  Report Type: Spontaneous
  Country: US (occurrence: US)
  Receive Date: 20210216
  Receipt Date: 20210216
  Transmission Date: 20210420
  Serious: Yes (Hospitalization)
  Sender: FDA-Public Use
  Company Number: US-SA-2020SA029127

PATIENT
  Age: 20 Year
  Sex: Female
  Weight: 39.46 kg

DRUGS (10)
  1. HEPARIN [Concomitant]
     Active Substance: HEPARIN SODIUM
  2. VANCOMYCIN [Concomitant]
     Active Substance: VANCOMYCIN
  3. PRILOCAINE [Concomitant]
     Active Substance: PRILOCAINE
  4. ACETAMINOPHEN. [Concomitant]
     Active Substance: ACETAMINOPHEN
  5. LIDOCAINE/PRILOCAINE [Concomitant]
     Active Substance: LIDOCAINE\PRILOCAINE
  6. ALDURAZYME [Suspect]
     Active Substance: LARONIDASE
     Indication: MUCOPOLYSACCHARIDOSIS
     Dosage: 17.4 MG, QW
     Route: 042
     Dates: start: 20110901
  7. NORMAL SALINE [Concomitant]
     Active Substance: SODIUM CHLORIDE
  8. DIPHENHYDRAMINE. [Concomitant]
     Active Substance: DIPHENHYDRAMINE
  9. EPINEPHRINE. [Concomitant]
     Active Substance: EPINEPHRINE
  10. CEFEPIME [Concomitant]
     Active Substance: CEFEPIME HYDROCHLORIDE

REACTIONS (2)
  - Hospitalisation [Unknown]
  - Product dose omission issue [Unknown]
